FAERS Safety Report 6923990-1 (Version None)
Quarter: 2010Q3

REPORT INFORMATION
  Report Type: 
  Country: None (occurrence: None)
  Receive Date: 20100813
  Receipt Date: 20100802
  Transmission Date: 20110219
  Serious: Yes (Other)
  Sender: FDA-Public Use
  Company Number: SE-GENENTECH-305209

PATIENT
  Age: 77 Year
  Sex: Male

DRUGS (1)
  1. LUCENTIS [Suspect]
     Indication: MACULOPATHY
     Dosage: UNK
     Route: 031
     Dates: start: 20100323

REACTIONS (1)
  - RETINAL PIGMENT EPITHELIAL TEAR [None]
